FAERS Safety Report 6190651-9 (Version None)
Quarter: 2009Q2

REPORT INFORMATION
  Report Type: 
  Country: None (occurrence: None)
  Receive Date: 20090514
  Receipt Date: 20090504
  Transmission Date: 20091009
  Serious: Yes (Other)
  Sender: FDA-Public Use
  Company Number: US-GENENTECH-276634

PATIENT
  Sex: Male
  Weight: 78.458 kg

DRUGS (12)
  1. NUTROPIN AQ [Suspect]
     Indication: GROWTH HORMONE DEFICIENCY
     Dosage: 1 MG, QD
     Route: 058
     Dates: start: 20051001
  2. NUTROPIN AQ [Suspect]
     Indication: PITUITARY TUMOUR BENIGN
  3. SYNTHROID [Concomitant]
     Indication: DRUG USE FOR UNKNOWN INDICATION
  4. CORTEF [Concomitant]
     Indication: DRUG USE FOR UNKNOWN INDICATION
  5. ANDROGEL [Concomitant]
     Indication: DRUG USE FOR UNKNOWN INDICATION
     Dosage: 2.5 UNK, UNK
  6. VITAMIN D3 [Concomitant]
     Indication: DRUG USE FOR UNKNOWN INDICATION
  7. ISOSORBIDE [Concomitant]
     Indication: DRUG USE FOR UNKNOWN INDICATION
  8. LORCET-HD [Concomitant]
     Indication: DRUG USE FOR UNKNOWN INDICATION
  9. ATENOLOL [Concomitant]
     Indication: DRUG USE FOR UNKNOWN INDICATION
  10. XANAX [Concomitant]
     Indication: DRUG USE FOR UNKNOWN INDICATION
  11. IRON NOS [Concomitant]
     Indication: DRUG USE FOR UNKNOWN INDICATION
  12. ASPIRIN [Concomitant]
     Indication: DRUG USE FOR UNKNOWN INDICATION

REACTIONS (1)
  - MYOCARDIAL INFARCTION [None]
